FAERS Safety Report 9890280 (Version 2)
Quarter: 2014Q1

REPORT INFORMATION
  Report Type: Spontaneous
  Country: US (occurrence: US)
  Receive Date: 20140212
  Receipt Date: 20140212
  Transmission Date: 20141002
  Serious: Yes (Other)
  Sender: FDA-Public Use
  Company Number: US-ABBVIE-14P-163-1194014-00

PATIENT
  Sex: Female

DRUGS (2)
  1. SYNTHROID [Suspect]
     Indication: THYROID DISORDER
     Dates: start: 2004, end: 2004
  2. SYNTHROID [Suspect]
     Dates: start: 2013

REACTIONS (3)
  - Breast cancer [Recovered/Resolved]
  - Drug effect incomplete [Recovered/Resolved]
  - Drug ineffective [Unknown]
